FAERS Safety Report 11308188 (Version 1)
Quarter: 2015Q3

REPORT INFORMATION
  Report Type: Spontaneous
  Country: CA (occurrence: CA)
  Receive Date: 20150724
  Receipt Date: 20150724
  Transmission Date: 20151125
  Serious: Yes (Other)
  Sender: FDA-Public Use
  Company Number: CA-BAYER-2015-180931

PATIENT
  Age: 91 Year
  Sex: Female

DRUGS (4)
  1. TURMERIC [Suspect]
     Active Substance: TURMERIC
     Indication: BACK PAIN
     Dosage: UNK
  2. ASPIRIN. [Suspect]
     Active Substance: ASPIRIN
     Dosage: UNK
  3. ADALAT CC [Suspect]
     Active Substance: NIFEDIPINE
     Indication: HYPERTENSION
     Dosage: 30 MG, BID
     Dates: start: 20150423
  4. ADALAT CC [Suspect]
     Active Substance: NIFEDIPINE
     Indication: PALPITATIONS

REACTIONS (8)
  - Headache [None]
  - Heart rate decreased [None]
  - Hypertension [None]
  - Gastrooesophageal reflux disease [None]
  - Asthenia [None]
  - Palpitations [None]
  - Peripheral swelling [Recovering/Resolving]
  - Insomnia [None]

NARRATIVE: CASE EVENT DATE: 2015
